FAERS Safety Report 5322531-2 (Version None)
Quarter: 2007Q2

REPORT INFORMATION
  Report Type: 
  Country: None (occurrence: None)
  Receive Date: 20070511
  Receipt Date: 20070501
  Transmission Date: 20071010
  Serious: Yes (Other)
  Sender: FDA-Public Use
  Company Number: PHFR2007GB01521

PATIENT

DRUGS (2)
  1. DIOVAN [Suspect]
     Dosage: 160MG DAILY
     Route: 065
  2. AMLODIPINE [Concomitant]
     Route: 065

REACTIONS (1)
  - CEREBROVASCULAR ACCIDENT [None]
